FAERS Safety Report 4339739-5 (Version None)
Quarter: 2004Q1

REPORT INFORMATION
  Report Type: 
  Country: None (occurrence: None)
  Receive Date: 20040329
  Receipt Date: 20040225
  Transmission Date: 20041129
  Serious: No
  Sender: FDA-Public Use
  Company Number: 04P-163-0251299-00

PATIENT
  Age: 71 Year
  Sex: Male
  Weight: 97.5234 kg

DRUGS (10)
  1. HUMIRA [Suspect]
     Indication: RHEUMATOID ARTHRITIS
     Dosage: 40 MG, 1 IN 2 WK, SUBCUTANEOUS
     Route: 058
     Dates: start: 20031201
  2. SERETIDE MITE [Concomitant]
  3. AMLODIPINE BESYLATE [Concomitant]
  4. HYZAAR [Concomitant]
  5. TERAZOSIN HCL [Concomitant]
  6. CELECOXIB [Concomitant]
  7. COUMADIN [Concomitant]
  8. OMEPRAZOLE [Concomitant]
  9. TRAZODONE HCL [Concomitant]
  10. ZOLPIDEM TARTRATE [Concomitant]

REACTIONS (2)
  - DRUG EFFECT DECREASED [None]
  - HEADACHE [None]
